FAERS Safety Report 15826502 (Version 2)
Quarter: 2019Q1

REPORT INFORMATION
  Report Type: Other
  Country: DE (occurrence: DE)
  Receive Date: 20190115
  Receipt Date: 20190321
  Transmission Date: 20190417
  Serious: Yes (Hospitalization)
  Sender: FDA-Public Use
  Company Number: DE-CELLTRION INC.-2019DE017769

PATIENT

DRUGS (11)
  1. CARMEN                             /01366402/ [Concomitant]
     Active Substance: LERCANIDIPINE
     Indication: HYPERTENSION
     Dosage: 20-10 MG, AS NECESSARY
     Route: 048
     Dates: start: 20070630
  2. DEKRISTOL [Concomitant]
     Active Substance: CHOLECALCIFEROL
     Dosage: 1 UNK, 1 WEEK
     Route: 048
     Dates: start: 20171222
  3. PARACETAMOL [Concomitant]
     Active Substance: ACETAMINOPHEN
     Indication: PAIN
     Dosage: UNK
     Route: 048
  4. PERTUZUMAB. [Suspect]
     Active Substance: PERTUZUMAB
     Indication: BREAST CANCER
     Dosage: 420 MG, MONTHLY, ON 14 DEC 2018, SHE RECEIVED THE MOST RECENT DOSE OF PERTUZUMAB PRIOR TO SERIOUS AD
     Route: 042
     Dates: start: 20171222, end: 20190113
  5. PANTOZOL [Concomitant]
     Active Substance: PANTOPRAZOLE SODIUM
     Indication: PROPHYLAXIS
     Dosage: 20 MG, AS NECESSARY
     Route: 048
     Dates: start: 20140630
  6. BISOPROLOL [Concomitant]
     Active Substance: BISOPROLOL
     Indication: TACHYCARDIA
     Dosage: UNK
     Route: 048
     Dates: start: 19970630
  7. TRASTUZUMAB (UNKNOWN) [Suspect]
     Active Substance: TRASTUZUMAB
     Dosage: 399.6 MG, MONTHLY
     Route: 042
     Dates: start: 20171222, end: 20190113
  8. ELIQUIS [Concomitant]
     Active Substance: APIXABAN
     Indication: DEEP VEIN THROMBOSIS
     Dosage: 105 MG, AS NECESSARY
     Route: 048
     Dates: start: 20140630
  9. TRASTUZUMAB (UNKNOWN) [Suspect]
     Active Substance: TRASTUZUMAB
     Indication: BREAST CANCER
     Dosage: 388.5 MG, MONTHLY
     Route: 042
     Dates: start: 20171222
  10. TRASTUZUMAB (UNKNOWN) [Suspect]
     Active Substance: TRASTUZUMAB
     Dosage: 390 MG
     Route: 042
  11. DOCETAXEL. [Suspect]
     Active Substance: DOCETAXEL
     Indication: BREAST CANCER
     Dosage: 130 MG,  1 MONTH
     Route: 065
     Dates: start: 20171222

REACTIONS (7)
  - Pleural effusion [Not Recovered/Not Resolved]
  - Foot deformity [Recovered/Resolved]
  - Leukopenia [Recovered/Resolved]
  - Cardiac failure [Not Recovered/Not Resolved]
  - Product use issue [Unknown]
  - Polyneuropathy [Not Recovered/Not Resolved]
  - Fall [Unknown]

NARRATIVE: CASE EVENT DATE: 20171222
